FAERS Safety Report 13459553 (Version 2)
Quarter: 2017Q2

REPORT INFORMATION
  Report Type: Spontaneous
  Country: GR (occurrence: GR)
  Receive Date: 20170419
  Receipt Date: 20170613
  Transmission Date: 20170830
  Serious: Yes (Disabling)
  Sender: FDA-Public Use
  Company Number: GR-MYLANLABS-2017M1023618

PATIENT

DRUGS (7)
  1. IMDUR [Concomitant]
     Active Substance: ISOSORBIDE MONONITRATE
     Indication: MYOCARDIAL ISCHAEMIA
     Dosage: UNK
  2. DIOVAN [Concomitant]
     Active Substance: VALSARTAN
     Indication: MYOCARDIAL ISCHAEMIA
     Dosage: UNK
  3. MAXUDIN [Concomitant]
     Indication: HYPERLIPIDAEMIA
     Dosage: UNK
  4. LOPRESSOR [Concomitant]
     Active Substance: METOPROLOL TARTRATE
     Indication: MYOCARDIAL ISCHAEMIA
     Dosage: UNK
  5. ADALAT CC [Concomitant]
     Active Substance: NIFEDIPINE
     Indication: MYOCARDIAL ISCHAEMIA
     Dosage: UNK
  6. KLARICID [Suspect]
     Active Substance: CLARITHROMYCIN
     Indication: SOFT TISSUE INFECTION
     Dosage: 500 MG, BID
     Route: 048
  7. PLAVIX [Concomitant]
     Active Substance: CLOPIDOGREL BISULFATE
     Indication: MYOCARDIAL ISCHAEMIA
     Dosage: UNK

REACTIONS (2)
  - Back pain [Not Recovered/Not Resolved]
  - Myalgia [Recovered/Resolved]
